FAERS Safety Report 8444667-X (Version None)
Quarter: 2012Q2

REPORT INFORMATION
  Report Type: 
  Country: None (occurrence: None)
  Receive Date: 20120618
  Receipt Date: 20120508
  Transmission Date: 20120825
  Serious: No
  Sender: FDA-Public Use
  Company Number: US-ASTRAZENECA-2012SE29728

PATIENT
  Age: 541 Month
  Sex: Female
  Weight: 45.4 kg

DRUGS (6)
  1. NAPROXEN [Concomitant]
  2. METOPROLOL SUCCINATE [Concomitant]
  3. PRISTIQ [Concomitant]
  4. LISINOPRIL [Concomitant]
  5. SEROQUEL [Suspect]
     Indication: DEPRESSION
     Route: 048
     Dates: start: 20110101
  6. SEROQUEL [Suspect]
     Indication: SLEEP DISORDER
     Route: 048
     Dates: start: 20110101

REACTIONS (9)
  - INSOMNIA [None]
  - APHAGIA [None]
  - ARTHRALGIA [None]
  - CHONDROPATHY [None]
  - IRRITABILITY [None]
  - WEIGHT DECREASED [None]
  - INTENTIONAL DRUG MISUSE [None]
  - OFF LABEL USE [None]
  - FEELING ABNORMAL [None]
